FAERS Safety Report 24016420 (Version 2)
Quarter: 2024Q3

REPORT INFORMATION
  Report Type: Report from Study
  Country: CA (occurrence: CA)
  Receive Date: 20240626
  Receipt Date: 20240812
  Transmission Date: 20241017
  Serious: Yes (Other)
  Sender: JOHNSON AND JOHNSON
  Company Number: CA-JNJFOC-20240660227

PATIENT
  Age: 0 Year
  Sex: Female
  Weight: 2.724 kg

DRUGS (2)
  1. REMICADE [Suspect]
     Active Substance: INFLIXIMAB
     Indication: Colitis ulcerative
     Route: 064
     Dates: start: 20230905
  2. REMICADE [Suspect]
     Active Substance: INFLIXIMAB
     Dosage: PARENTS DOSAGE.
     Route: 063

REACTIONS (3)
  - Meconium stain [Recovered/Resolved]
  - Foetal exposure during pregnancy [Recovered/Resolved]
  - Exposure via breast milk [Unknown]

NARRATIVE: CASE EVENT DATE: 20240605
